FAERS Safety Report 9645037 (Version 3)
Quarter: 2014Q2

REPORT INFORMATION
  Report Type: Report from Study
  Country: ZA (occurrence: ZA)
  Receive Date: 20131025
  Receipt Date: 20140421
  Transmission Date: 20141212
  Serious: Yes (Death, Hospitalization)
  Sender: FDA-Public Use
  Company Number: ZA-AMGEN-ZAFCT2013036595

PATIENT
  Age: 67 Year
  Sex: Male
  Weight: 70.4 kg

DRUGS (8)
  1. ETANERCEPT [Suspect]
     Indication: RHEUMATOID ARTHRITIS
     Dosage: 50 MG, QWK
     Route: 058
     Dates: start: 20120705
  2. METHOTREXATE [Concomitant]
     Indication: RHEUMATOID ARTHRITIS
     Dosage: 15 MG, 2X/WEEK
     Route: 048
     Dates: start: 20100729
  3. FOLATE [Concomitant]
     Indication: RHEUMATOID ARTHRITIS
     Dosage: 5 MG, DAILY
     Route: 048
     Dates: start: 2003
  4. NORVASC [Concomitant]
     Indication: HYPERTENSION
     Dosage: 5 MG, DAILY
     Route: 048
     Dates: start: 20111118
  5. HYDROCHLOROTHIAZIDE [Concomitant]
     Indication: HYPERTENSION
     Dosage: 12.5 MG, DAILY
     Route: 048
     Dates: start: 20080411
  6. ELTROXIN [Concomitant]
     Indication: HYPOTHYROIDISM
     Dosage: 100 MUG, QD
     Route: 048
     Dates: start: 20120518
  7. SPECTRAPAIN [Concomitant]
     Indication: RHEUMATOID ARTHRITIS
     Dosage: 1000 MG, 3X/DAY
     Route: 048
     Dates: start: 20080411
  8. CHOLESTYRAMINE RESIN [Concomitant]
     Indication: HYPERLIPIDAEMIA
     Dosage: UNK
     Route: 048
     Dates: start: 20120113, end: 20120819

REACTIONS (2)
  - Atrial fibrillation [Fatal]
  - Sepsis [Fatal]
